FAERS Safety Report 7375967-2 (Version None)
Quarter: 2011Q1

REPORT INFORMATION
  Report Type: 
  Country: None (occurrence: None)
  Receive Date: 20110325
  Receipt Date: 20101213
  Transmission Date: 20110831
  Serious: No
  Sender: FDA-Public Use
  Company Number: US-MYLANLABS-2010S1021794

PATIENT
  Age: 42 Year
  Sex: Female
  Weight: 58.97 kg

DRUGS (3)
  1. FENTANYL-100 [Suspect]
     Indication: BACK PAIN
     Dosage: Q 60 HOURS
     Route: 062
     Dates: start: 20101108, end: 20101123
  2. SOMA [Concomitant]
  3. FENTANYL-100 [Concomitant]
     Dosage: WATSON
     Route: 062

REACTIONS (3)
  - APPLICATION SITE EROSION [None]
  - APPLICATION SITE SCAB [None]
  - APPLICATION SITE SCAR [None]
